FAERS Safety Report 8282501-1 (Version None)
Quarter: 2012Q2

REPORT INFORMATION
  Report Type: 
  Country: None (occurrence: None)
  Receive Date: 20120413
  Receipt Date: 20120410
  Transmission Date: 20120825
  Serious: No
  Sender: FDA-Public Use
  Company Number: US-TEVA-332818USA

PATIENT
  Sex: Male
  Weight: 68.1 kg

DRUGS (1)
  1. PROAIR HFA [Suspect]
     Indication: ASTHMA
     Dosage: PRN

REACTIONS (2)
  - THROAT IRRITATION [None]
  - GLOSSODYNIA [None]
